FAERS Safety Report 10027916 (Version 3)
Quarter: 2014Q2

REPORT INFORMATION
  Report Type: Spontaneous
  Country: GB (occurrence: GB)
  Receive Date: 20140321
  Receipt Date: 20140414
  Transmission Date: 20141212
  Serious: Yes (Hospitalization)
  Sender: FDA-Public Use
  Company Number: PHFR2014GB001802

PATIENT
  Age: 34 Year
  Sex: Female

DRUGS (7)
  1. CLOZARIL [Suspect]
     Dosage: 100 MG, DAILY
     Route: 048
     Dates: start: 20120726
  2. LITHIUM [Concomitant]
     Dosage: 200 MG, UNK
     Route: 048
  3. BISOPROLOL [Concomitant]
     Dosage: 2.5 MG, QD
     Route: 048
  4. FERROUS SULPHATE [Concomitant]
     Dosage: 400 MG, QD
     Route: 048
  5. SOLIFENACIN [Concomitant]
     Dosage: 10 MG, QD
     Route: 048
  6. ORAL CONTRACEPTIVE NOS [Concomitant]
     Dosage: UNK UKN, QD
     Route: 048
  7. BENZHEXOL [Concomitant]
     Dosage: 10 MG, QD
     Route: 048

REACTIONS (4)
  - Urinary tract infection [Recovered/Resolved]
  - Abdominal pain [Recovered/Resolved]
  - Pyrexia [Recovered/Resolved]
  - Neutropenia [Unknown]
